FAERS Safety Report 15708516 (Version 1)
Quarter: 2018Q4

REPORT INFORMATION
  Report Type: Spontaneous
  Country: PH (occurrence: PH)
  Receive Date: 20181211
  Receipt Date: 20181211
  Transmission Date: 20190205
  Serious: Yes (Other)
  Sender: FDA-Public Use
  Company Number: PH-009507513-1812PHL001202

PATIENT
  Age: 63 Year
  Sex: Female

DRUGS (1)
  1. ERTAPENEM SODIUM [Suspect]
     Active Substance: ERTAPENEM SODIUM
     Indication: ENDOMETRIAL ADENOCARCINOMA
     Dosage: UNK

REACTIONS (1)
  - Uterine rupture [Recovered/Resolved]
